FAERS Safety Report 7045029-2 (Version None)
Quarter: 2010Q4

REPORT INFORMATION
  Report Type: 
  Country: None (occurrence: None)
  Receive Date: 20101014
  Receipt Date: 20101004
  Transmission Date: 20110411
  Serious: Yes (Other)
  Sender: FDA-Public Use
  Company Number: PHHY2010FR67064

PATIENT
  Sex: Male

DRUGS (3)
  1. LESCOL [Suspect]
     Dosage: 80 MG
     Route: 048
  2. BISOPROLOL FUMARATE [Suspect]
     Dosage: 10 MG PER DAY
     Route: 048
  3. KARDEGIC [Suspect]
     Dosage: UNK
     Route: 048

REACTIONS (1)
  - RETROPERITONEAL FIBROSIS [None]
